FAERS Safety Report 17441660 (Version 2)
Quarter: 2020Q1

REPORT INFORMATION
  Report Type: Spontaneous
  Country: US (occurrence: US)
  Receive Date: 20200220
  Receipt Date: 20200221
  Transmission Date: 20200409
  Serious: No
  Sender: FDA-Public Use
  Company Number: US-PFIZER INC-2020076448

PATIENT
  Age: 62 Year
  Sex: Male

DRUGS (1)
  1. GABAPENTIN. [Suspect]
     Active Substance: GABAPENTIN
     Indication: OSTEOARTHRITIS
     Dosage: UNK

REACTIONS (7)
  - Feeling abnormal [Unknown]
  - Product use in unapproved indication [Unknown]
  - Memory impairment [Unknown]
  - Dysphemia [Unknown]
  - Chest discomfort [Unknown]
  - Off label use [Unknown]
  - Mobility decreased [Unknown]
